FAERS Safety Report 5106592-1 (Version None)
Quarter: 2006Q3

REPORT INFORMATION
  Report Type: 
  Country: None (occurrence: None)
  Receive Date: 20060918
  Receipt Date: 20060908
  Transmission Date: 20061208
  Serious: Yes (Other)
  Sender: FDA-Public Use
  Company Number: 2006UW18098

PATIENT
  Sex: Female

DRUGS (1)
  1. NOLVADEX [Suspect]
     Indication: BREAST CANCER FEMALE
     Route: 048

REACTIONS (3)
  - HAEMANGIOMA [None]
  - HOT FLUSH [None]
  - UTERINE HAEMORRHAGE [None]
